FAERS Safety Report 17673032 (Version 1)
Quarter: 2020Q2

REPORT INFORMATION
  Report Type: Other
  Country: US (occurrence: US)
  Receive Date: 20200415
  Receipt Date: 20200415
  Transmission Date: 20200713
  Serious: Yes (Hospitalization)
  Sender: FDA-Public Use
  Company Number: US-ALKERMES INC.-ALK-2019-006089

PATIENT
  Age: 45 Year
  Sex: Male

DRUGS (5)
  1. VIVITROL [Suspect]
     Active Substance: NALTREXONE
     Indication: ALCOHOLISM
  2. VIVITROL [Suspect]
     Active Substance: NALTREXONE
     Indication: PAIN
  3. VIVITROL [Suspect]
     Active Substance: NALTREXONE
     Indication: ANKLE FRACTURE
  4. VIVITROL [Suspect]
     Active Substance: NALTREXONE
     Indication: DRUG DEPENDENCE
  5. VIVITROL [Suspect]
     Active Substance: NALTREXONE
     Indication: HEAD INJURY
     Dosage: 380 MG, QMO
     Route: 030
     Dates: start: 201905, end: 201905

REACTIONS (4)
  - Off label use [Recovered/Resolved]
  - Inadequate analgesia [Unknown]
  - Malaise [Unknown]
  - Pain [Unknown]

NARRATIVE: CASE EVENT DATE: 201905
